FAERS Safety Report 9671706 (Version 1)
Quarter: 2013Q4

REPORT INFORMATION
  Report Type: Spontaneous
  Country: US (occurrence: None)
  Receive Date: 20131105
  Receipt Date: 20131105
  Transmission Date: 20140711
  Serious: Yes (Hospitalization)
  Sender: FDA-Public Use
  Company Number: None

PATIENT
  Age: 48 Year
  Sex: Male

DRUGS (5)
  1. JANUVIA [Suspect]
     Indication: TYPE 2 DIABETES MELLITUS
     Dosage: SEVERAL YEARS, 100 MG, QD, ORAL
     Route: 048
  2. FLECAINIDE + THERAPEUTIC LEVELS [Concomitant]
  3. WARFARIN [Concomitant]
  4. NORCO [Concomitant]
  5. ARIPIPRAZOLE [Concomitant]

REACTIONS (1)
  - Pancreatitis [None]
